FAERS Safety Report 9811544 (Version 2)
Quarter: 2014Q1

REPORT INFORMATION
  Report Type: Spontaneous
  Country: US (occurrence: US)
  Receive Date: 20140110
  Receipt Date: 20140110
  Transmission Date: 20141002
  Serious: Yes (Hospitalization, Other)
  Sender: FDA-Public Use
  Company Number: US-SANOFI-AVENTIS-2013SA029314

PATIENT
  Age: 75 Year
  Sex: Female

DRUGS (8)
  1. PLAVIX [Suspect]
  2. ANTITHROMBOTIC AGENTS [Suspect]
     Route: 048
     Dates: start: 20100727, end: 20121105
  3. SYNTHROID [Concomitant]
  4. ISOSORBIDE [Concomitant]
  5. ZOCOR [Concomitant]
  6. DILTIAZEM [Concomitant]
  7. FOLIC ACID [Concomitant]
  8. METOPROLOL [Concomitant]

REACTIONS (1)
  - Lower gastrointestinal haemorrhage [Recovered/Resolved]
